FAERS Safety Report 15677476 (Version 1)
Quarter: 2018Q4

REPORT INFORMATION
  Report Type: Report from Study
  Country: ZA (occurrence: ZA)
  Receive Date: 20181130
  Receipt Date: 20181130
  Transmission Date: 20190205
  Serious: Yes (Death, Hospitalization)
  Sender: FDA-Public Use
  Company Number: ZA-SA-2018SA290371

PATIENT
  Age: 59 Year
  Sex: Male

DRUGS (4)
  1. INSULIN GLARGINE [Suspect]
     Active Substance: INSULIN GLARGINE
     Indication: TYPE 2 DIABETES MELLITUS
     Dosage: 14 U AT BT
     Dates: start: 20180920
  2. GLICLAZIDE [Concomitant]
     Active Substance: GLICLAZIDE
     Dosage: 80 MG BS AND BB
     Dates: start: 20181002
  3. INSULIN GLARGINE [Suspect]
     Active Substance: INSULIN GLARGINE
     Dosage: 16 U, QD
     Dates: start: 20181020
  4. METFORMIN [Concomitant]
     Active Substance: METFORMIN HYDROCHLORIDE
     Dosage: 500 MG, BID AT BS AND BB
     Dates: start: 20180807

REACTIONS (5)
  - Malaise [Unknown]
  - Pain [Not Recovered/Not Resolved]
  - Blood glucose abnormal [Fatal]
  - Malaise [Fatal]
  - Hyperglycaemia [Unknown]

NARRATIVE: CASE EVENT DATE: 20181116
